FAERS Safety Report 6399156-3 (Version None)
Quarter: 2009Q4

REPORT INFORMATION
  Report Type: 
  Country: None (occurrence: None)
  Receive Date: 20091008
  Receipt Date: 20090929
  Transmission Date: 20100525
  Serious: Yes (Death)
  Sender: FDA-Public Use
  Company Number: AE-2009-216

PATIENT
  Age: 82 Year
  Sex: Female
  Weight: 100 kg

DRUGS (3)
  1. METFORMIN HCL [Suspect]
     Indication: DIABETES MELLITUS
     Dosage: 2000 MG, QD, ORAL
     Route: 048
  2. NOVONORM [Concomitant]
  3. LANTUS [Concomitant]

REACTIONS (3)
  - LACTIC ACIDOSIS [None]
  - PULMONARY OEDEMA [None]
  - RENAL FAILURE ACUTE [None]
